FAERS Safety Report 7633343-9 (Version None)
Quarter: 2011Q3

REPORT INFORMATION
  Report Type: 
  Country: None (occurrence: None)
  Receive Date: 20110725
  Receipt Date: 20100813
  Transmission Date: 20111222
  Serious: No
  Sender: FDA-Public Use
  Company Number: US-BRISTOL-MYERS SQUIBB COMPANY-15239833

PATIENT
  Age: 61 Year
  Sex: Female

DRUGS (1)
  1. SPRYCEL [Suspect]
     Dates: end: 20100813

REACTIONS (2)
  - DYSPNOEA [None]
  - PLEURAL EFFUSION [None]
